FAERS Safety Report 6872301-9 (Version None)
Quarter: 2010Q3

REPORT INFORMATION
  Report Type: 
  Country: None (occurrence: None)
  Receive Date: 20100723
  Receipt Date: 20100713
  Transmission Date: 20110219
  Serious: Yes (Other)
  Sender: FDA-Public Use
  Company Number: PHHY2010JP36660

PATIENT
  Weight: 40 kg

DRUGS (3)
  1. NEORAL [Suspect]
     Indication: INTERSTITIAL LUNG DISEASE
     Dosage: 150 MG, DAILY
     Route: 048
  2. NEORAL [Suspect]
     Dosage: 75 MG, DAILY
     Route: 048
  3. STEROIDS NOS [Concomitant]

REACTIONS (3)
  - BETA 2 MICROGLOBULIN INCREASED [None]
  - BLOOD CREATININE INCREASED [None]
  - HAEMATURIA [None]
